FAERS Safety Report 23945935 (Version 1)
Quarter: 2024Q2

REPORT INFORMATION
  Report Type: Spontaneous
  Country: CH (occurrence: CH)
  Receive Date: 20240606
  Receipt Date: 20240606
  Transmission Date: 20240716
  Serious: Yes (Other)
  Sender: FDA-Public Use
  Company Number: CH-009507513-2406CHE000028

PATIENT
  Sex: Male

DRUGS (1)
  1. BCG LIVE [Suspect]
     Active Substance: BACILLUS CALMETTE-GUERIN SUBSTRAIN TICE LIVE ANTIGEN
     Indication: Bladder cancer
     Dosage: UNK
     Route: 043
     Dates: start: 201508, end: 201509

REACTIONS (10)
  - Urinary tract infection enterococcal [Unknown]
  - Nephrolithiasis [Recovered/Resolved]
  - Leukoencephalopathy [Unknown]
  - Cerebral microhaemorrhage [Unknown]
  - Polyneuropathy [Unknown]
  - Drug intolerance [Unknown]
  - Renal cyst [Unknown]
  - Aortic aneurysm [Unknown]
  - Parkinsonism [Unknown]
  - Peripheral arterial occlusive disease [Unknown]

NARRATIVE: CASE EVENT DATE: 20150101
